FAERS Safety Report 10477222 (Version 2)
Quarter: 2014Q4

REPORT INFORMATION
  Report Type: Spontaneous
  Country: CA (occurrence: CA)
  Receive Date: 20140926
  Receipt Date: 20141009
  Transmission Date: 20150528
  Serious: No
  Sender: FDA-Public Use
  Company Number: CA-AMGEN-CANSP2014072809

PATIENT
  Age: 79 Year
  Sex: Female

DRUGS (1)
  1. PROLIA [Suspect]
     Active Substance: DENOSUMAB
     Indication: OSTEOPENIA
     Dosage: UNK
     Route: 065
     Dates: start: 20141001

REACTIONS (4)
  - Back pain [Unknown]
  - Joint instability [Unknown]
  - Arthritis [Unknown]
  - Muscular weakness [Unknown]
